FAERS Safety Report 8887582 (Version 1)
Quarter: 2012Q4

REPORT INFORMATION
  Report Type: Spontaneous
  Country: US (occurrence: None)
  Receive Date: 20121106
  Receipt Date: 20121106
  Transmission Date: 20130627
  Serious: Yes (Life-Threatening, Disabling)
  Sender: FDA-Public Use
  Company Number: None

PATIENT
  Age: 50 Year
  Sex: Female
  Weight: 53.07 kg

DRUGS (4)
  1. METHYLPREDNISOLONE [Suspect]
     Indication: ROTATOR CUFF SYNDROME
     Dates: start: 20120618, end: 20120618
  2. METHYLPREDNISOLONE [Suspect]
     Indication: ADHESION
     Dates: start: 20120618, end: 20120618
  3. LIDOCAINE [Suspect]
  4. BUPIVACAINE [Suspect]

REACTIONS (6)
  - Product quality issue [None]
  - Fatigue [None]
  - Back pain [None]
  - Muscular weakness [None]
  - Headache [None]
  - Bedridden [None]
